FAERS Safety Report 5803506-3 (Version None)
Quarter: 2008Q3

REPORT INFORMATION
  Report Type: 
  Country: None (occurrence: None)
  Receive Date: 20080702
  Receipt Date: 20080627
  Transmission Date: 20090109
  Serious: Yes (Other)
  Sender: FDA-Public Use
  Company Number: GXKR2008DE05895

PATIENT
  Sex: Male

DRUGS (1)
  1. CIPROHEXAL (NGX) (CIPROFLOXACIN) FILM-COATED TABLET [Suspect]
     Dosage: , ORAL
     Route: 048

REACTIONS (2)
  - NERVOUS SYSTEM DISORDER [None]
  - PHLEBITIS [None]
